FAERS Safety Report 9083086 (Version 1)
Quarter: 2013Q1

REPORT INFORMATION
  Report Type: Spontaneous
  Country: US (occurrence: US)
  Receive Date: 20130130
  Receipt Date: 20130130
  Transmission Date: 20140127
  Serious: No
  Sender: FDA-Public Use
  Company Number: US-ABBOTT-12P-163-0953809-00

PATIENT
  Age: 30 None
  Sex: Female
  Weight: 56.3 kg

DRUGS (2)
  1. HUMIRA 40 MG/0.8 ML PEN [Suspect]
     Indication: CROHN^S DISEASE
     Dates: start: 20120629, end: 20120629
  2. ASACOL [Concomitant]
     Indication: CROHN^S DISEASE

REACTIONS (2)
  - Overdose [Recovered/Resolved]
  - Headache [Not Recovered/Not Resolved]
